FAERS Safety Report 4543585-7 (Version None)
Quarter: 2005Q1

REPORT INFORMATION
  Report Type: 
  Country: None (occurrence: None)
  Receive Date: 20050103
  Receipt Date: 20040913
  Transmission Date: 20050727
  Serious: Yes (Death)
  Sender: FDA-Public Use
  Company Number: NL-GLAXOSMITHKLINE-B0346086A

PATIENT
  Age: 66 Year
  Sex: Female
  Weight: 90 kg

DRUGS (5)
  1. ZELITREX [Suspect]
     Indication: ANTIVIRAL PROPHYLAXIS
     Route: 048
     Dates: start: 20040606, end: 20040629
  2. CYCLOSPORINE [Concomitant]
  3. PROGRAF [Concomitant]
  4. STEROID [Concomitant]
  5. SIMULECT [Concomitant]

REACTIONS (6)
  - GRAFT VERSUS HOST DISEASE [None]
  - GRANULOCYTOPENIA [None]
  - HEPATORENAL SYNDROME [None]
  - PANCYTOPENIA [None]
  - RASH [None]
  - SEPSIS [None]
